FAERS Safety Report 20031297 (Version 1)
Quarter: 2021Q4

REPORT INFORMATION
  Report Type: Spontaneous
  Country: US (occurrence: US)
  Receive Date: 20211103
  Receipt Date: 20211103
  Transmission Date: 20220303
  Serious: Yes (Other)
  Sender: FDA-Public Use
  Company Number: US-MMM-YAHO30WN

PATIENT
  Age: 4 Decade
  Sex: Female

DRUGS (4)
  1. VRAYLAR [Suspect]
     Active Substance: CARIPRAZINE
     Indication: Mood swings
     Dosage: 3 MG
  2. VRAYLAR [Suspect]
     Active Substance: CARIPRAZINE
     Indication: Bipolar I disorder
     Dosage: 1.5 MG
  3. LITHIUM [Concomitant]
     Active Substance: LITHIUM
  4. LAMICTAL [Concomitant]
     Active Substance: LAMOTRIGINE

REACTIONS (3)
  - Akathisia [Unknown]
  - Impaired work ability [Unknown]
  - Tremor [Unknown]

NARRATIVE: CASE EVENT DATE: 20200901
